FAERS Safety Report 12968892 (Version 2)
Quarter: 2017Q1

REPORT INFORMATION
  Report Type: Spontaneous
  Country: IL (occurrence: IL)
  Receive Date: 20161123
  Receipt Date: 20170329
  Transmission Date: 20170428
  Serious: No
  Sender: FDA-Public Use
  Company Number: IL-B. BRAUN MEDICAL INC.-1059990

PATIENT

DRUGS (7)
  1. METRONIDAZOLE. [Suspect]
     Active Substance: METRONIDAZOLE
     Route: 042
     Dates: start: 20161030
  2. TRAMADOL HCL [Suspect]
     Active Substance: TRAMADOL HYDROCHLORIDE
     Route: 048
     Dates: start: 20161030
  3. 5% DEXTROSE AND 0.45% SALINE [Concomitant]
     Dates: start: 20161030
  4. METOCLOPRAMIDE HCL [Concomitant]
     Active Substance: METOCLOPRAMIDE HYDROCHLORIDE
     Dates: start: 20161030
  5. MORPHINE HCL [Concomitant]
     Active Substance: MORPHINE HYDROCHLORIDE
     Dates: start: 20161030
  6. GENTAMICIN. [Suspect]
     Active Substance: GENTAMICIN
     Dates: start: 20161030
  7. METAMIZOLE [Concomitant]
     Active Substance: METAMIZOLE
     Route: 048
     Dates: start: 20161031

REACTIONS (4)
  - Hypoaesthesia [Recovered/Resolved]
  - Asthenia [None]
  - Paraesthesia [Recovered/Resolved]
  - Dizziness [None]

NARRATIVE: CASE EVENT DATE: 20161031
